FAERS Safety Report 13632899 (Version 1)
Quarter: 2017Q2

REPORT INFORMATION
  Report Type: Spontaneous
  Country: US (occurrence: US)
  Receive Date: 20170531
  Receipt Date: 20170531
  Transmission Date: 20170830
  Serious: No
  Sender: FDA-Public Use
  Company Number: US-ASTELLAS-1488695

PATIENT
  Sex: Female

DRUGS (18)
  1. TARCEVA [Suspect]
     Active Substance: ERLOTINIB HYDROCHLORIDE
     Indication: NAUSEA
  2. PROMETHAZINE [Concomitant]
     Active Substance: PROMETHAZINE\PROMETHAZINE HYDROCHLORIDE
  3. LANTUS [Concomitant]
     Active Substance: INSULIN GLARGINE
  4. TARCEVA [Suspect]
     Active Substance: ERLOTINIB HYDROCHLORIDE
     Indication: VOMITING
  5. GLIPIZIDE. [Concomitant]
     Active Substance: GLIPIZIDE
  6. PARICALCITOL. [Concomitant]
     Active Substance: PARICALCITOL
  7. IMODIUM [Concomitant]
     Active Substance: LOPERAMIDE HYDROCHLORIDE
  8. NIFEDIPINE. [Concomitant]
     Active Substance: NIFEDIPINE
  9. LEVOTHYROXINE. [Concomitant]
     Active Substance: LEVOTHYROXINE
  10. NOVOLOG [Concomitant]
     Active Substance: INSULIN ASPART
  11. DIGOXIN. [Concomitant]
     Active Substance: DIGOXIN
  12. ONDANSETRON [Concomitant]
     Active Substance: ONDANSETRON
  13. BENADRYL [Concomitant]
     Active Substance: DIPHENHYDRAMINE HYDROCHLORIDE
  14. LASIX [Concomitant]
     Active Substance: FUROSEMIDE
  15. IMODIUM [Concomitant]
     Active Substance: LOPERAMIDE HYDROCHLORIDE
  16. TARCEVA [Suspect]
     Active Substance: ERLOTINIB HYDROCHLORIDE
     Indication: LUNG NEOPLASM MALIGNANT
     Route: 048
     Dates: start: 20141016
  17. PANTOPRAZOLE [Concomitant]
     Active Substance: PANTOPRAZOLE
  18. PREDNISONE. [Concomitant]
     Active Substance: PREDNISONE

REACTIONS (6)
  - Lip swelling [Unknown]
  - Asthenia [Unknown]
  - Cellulitis [Unknown]
  - Diarrhoea [Unknown]
  - Skin ulcer [Unknown]
  - Rash [Unknown]
